FAERS Safety Report 9316511 (Version 1)
Quarter: 2013Q2

REPORT INFORMATION
  Report Type: Spontaneous
  Country: DK (occurrence: None)
  Receive Date: 20130522
  Receipt Date: 20130522
  Transmission Date: 20140414
  Serious: Yes (Death)
  Sender: FDA-Public Use
  Company Number: CIP-2013-00130

PATIENT
  Sex: 0

DRUGS (6)
  1. IRINOTECAN [Suspect]
     Indication: GASTROOESOPHAGEAL CANCER
  2. CETUXIMAB (CETUXIMAB) (INFUSION) [Suspect]
     Indication: GASTROOESOPHAGEAL CANCER
  3. CLEMASTINE (CLEMASTINE) [Concomitant]
  4. ANTIEMETIC (ANTIEMETICS AND ANTINAUSEANTS) [Concomitant]
  5. PREDNISOLONE (PREDNISOLONE) [Concomitant]
  6. ONDANSETRONE (ONDANSETRON HYDROCHLORIDE) [Concomitant]

REACTIONS (1)
  - Pneumonia [None]
